FAERS Safety Report 16156803 (Version 1)
Quarter: 2019Q2

REPORT INFORMATION
  Report Type: Spontaneous
  Country: US (occurrence: US)
  Receive Date: 20190228
  Receipt Date: 20190228
  Transmission Date: 20190711
  Serious: No
  Sender: FDA-Public Use
  Company Number: None

PATIENT
  Age: 25 Year
  Sex: Female
  Weight: 58.2 kg

DRUGS (1)
  1. HYPERBARIC BUPIVICAINE 0.75% [Suspect]
     Active Substance: BUPIVACAINE
     Indication: NEUROMUSCULAR BLOCKADE
     Dates: start: 20190209

REACTIONS (1)
  - Drug ineffective [None]

NARRATIVE: CASE EVENT DATE: 20190209
